FAERS Safety Report 8279158-2 (Version None)
Quarter: 2012Q2

REPORT INFORMATION
  Report Type: 
  Country: None (occurrence: None)
  Receive Date: 20120412
  Receipt Date: 20120209
  Transmission Date: 20120825
  Serious: No
  Sender: FDA-Public Use
  Company Number: US-ASTRAZENECA-2009UW04535

PATIENT
  Age: 34 Year
  Sex: Female
  Weight: 54.9 kg

DRUGS (7)
  1. XANAX [Concomitant]
  2. NEXIUM [Suspect]
     Indication: DYSPEPSIA
     Route: 048
     Dates: start: 20060101
  3. NEXIUM [Suspect]
     Route: 048
     Dates: start: 20090101
  4. ATENOLOL [Concomitant]
  5. TRAZODONE HCL [Concomitant]
  6. PROTONIX [Concomitant]
  7. FLEXERIL [Concomitant]

REACTIONS (4)
  - ABDOMINAL DISCOMFORT [None]
  - WEIGHT DECREASED [None]
  - MALAISE [None]
  - DRUG DOSE OMISSION [None]
